FAERS Safety Report 6860253-7 (Version None)
Quarter: 2010Q3

REPORT INFORMATION
  Report Type: 
  Country: None (occurrence: None)
  Receive Date: 20100715
  Receipt Date: 20100709
  Transmission Date: 20110219
  Serious: Yes (Hospitalization)
  Sender: FDA-Public Use
  Company Number: AMI0022780

PATIENT
  Weight: 69.8539 kg

DRUGS (3)
  1. LACRISERT [Suspect]
     Indication: DRY EYE
     Dosage: 5MG O.U. - 046
     Dates: start: 19800101
  2. ALPRAZOLAM [Concomitant]
  3. LIPITOR [Concomitant]

REACTIONS (3)
  - INSOMNIA [None]
  - MYCOBACTERIUM AVIUM COMPLEX INFECTION [None]
  - WRONG TECHNIQUE IN DRUG USAGE PROCESS [None]
